FAERS Safety Report 12957225 (Version 5)
Quarter: 2018Q2

REPORT INFORMATION
  Report Type: Spontaneous
  Country: FR (occurrence: FR)
  Receive Date: 20161118
  Receipt Date: 20180530
  Transmission Date: 20180711
  Serious: Yes (Hospitalization)
  Sender: FDA-Public Use
  Company Number: FR-PFIZER INC-2016533662

PATIENT
  Age: 25 Year
  Sex: Male

DRUGS (16)
  1. SUFENTANIL [Concomitant]
     Active Substance: SUFENTANIL
     Indication: SEDATION
     Dosage: UNK
     Route: 041
  2. CLOBAZAM [Concomitant]
     Active Substance: CLOBAZAM
     Dosage: 5 MG, TWICE DAILY (ON DAY 4)
  3. LEVETIRACETAM. [Suspect]
     Active Substance: LEVETIRACETAM
     Indication: EPILEPSY
     Dosage: 500 MG, TWICE DAILY
  4. THIOPENTAL [Concomitant]
     Active Substance: THIOPENTAL
     Indication: SEDATION
  5. PROPOFOL. [Concomitant]
     Active Substance: PROPOFOL
     Indication: EPILEPSY
     Dosage: UNK
  6. CLONAZEPAM. [Concomitant]
     Active Substance: CLONAZEPAM
     Indication: GENERALISED TONIC-CLONIC SEIZURE
     Dosage: 1 MG, (TWICE BUT UNSPECIFIED)
  7. FOSPHENYTOIN [Concomitant]
     Active Substance: FOSPHENYTOIN\FOSPHENYTOIN SODIUM
     Indication: GENERALISED TONIC-CLONIC SEIZURE
     Dosage: 1.5 G, UNK
  8. CLONAZEPAM. [Concomitant]
     Active Substance: CLONAZEPAM
     Indication: SLEEP DEFICIT
  9. ENOXAPARIN [Concomitant]
     Active Substance: ENOXAPARIN
     Indication: EPILEPSY
     Dosage: UNK
  10. THIOPENTAL [Concomitant]
     Active Substance: THIOPENTAL
     Indication: SEIZURE
     Dosage: UNK
  11. CLOBAZAM [Concomitant]
     Active Substance: CLOBAZAM
     Indication: EPILEPSY
     Dosage: 5 MG, THRICE DAILY (ON DAY 1)
  12. THIOPENTAL [Concomitant]
     Active Substance: THIOPENTAL
     Indication: STATUS EPILEPTICUS
  13. SUFENTANIL [Concomitant]
     Active Substance: SUFENTANIL
     Indication: STATUS EPILEPTICUS
  14. SUXAMETHONIUM [Concomitant]
     Active Substance: SUCCINYLCHOLINE
     Indication: ENDOTRACHEAL INTUBATION
     Dosage: UNK
  15. FOSPHENYTOIN [Concomitant]
     Active Substance: FOSPHENYTOIN\FOSPHENYTOIN SODIUM
     Indication: SLEEP DEFICIT
  16. ESOMEPRAZOL [Concomitant]
     Active Substance: ESOMEPRAZOLE
     Dosage: 40 MG, UNK

REACTIONS (1)
  - Blood creatine phosphokinase increased [Recovering/Resolving]
